FAERS Safety Report 25969154 (Version 1)
Quarter: 2025Q4

REPORT INFORMATION
  Report Type: Spontaneous
  Country: US (occurrence: None)
  Receive Date: 20251027
  Receipt Date: 20251027
  Transmission Date: 20260119
  Serious: Yes (Life-Threatening, Other)
  Sender: FDA-CTU
  Company Number: None

PATIENT
  Age: 45 Year
  Sex: Female
  Weight: 50 kg

DRUGS (1)
  1. ESTRADIOL [Suspect]
     Active Substance: ESTRADIOL
     Dosage: 1 GRAMM DAILY VAGINAL ;?
     Route: 067
     Dates: start: 20251025, end: 20251025

REACTIONS (9)
  - Erythema [None]
  - Application site pain [None]
  - Vulvovaginal burning sensation [None]
  - Hypersensitivity [None]
  - Nausea [None]
  - Headache [None]
  - Dyspnoea [None]
  - Pharyngeal swelling [None]
  - Insomnia [None]

NARRATIVE: CASE EVENT DATE: 20251025
